FAERS Safety Report 10191254 (Version 1)
Quarter: 2014Q2

REPORT INFORMATION
  Report Type: Spontaneous
  Country: US (occurrence: None)
  Receive Date: 20140522
  Receipt Date: 20140522
  Transmission Date: 20141212
  Serious: No
  Sender: FDA-Public Use
  Company Number: None

PATIENT
  Age: 50 Year
  Sex: Female

DRUGS (1)
  1. CONCERTA (GENERIC) [Suspect]
     Indication: ATTENTION DEFICIT/HYPERACTIVITY DISORDER
     Dosage: ONE PILL, ONCE DAILY, TAKEN BY MOUTH
     Route: 048

REACTIONS (4)
  - Palpitations [None]
  - Anxiety [None]
  - Depressed mood [None]
  - Product substitution issue [None]
